FAERS Safety Report 4287676-7 (Version None)
Quarter: 2004Q1

REPORT INFORMATION
  Report Type: 
  Country: None (occurrence: None)
  Receive Date: 20040209
  Receipt Date: 20030826
  Transmission Date: 20041129
  Serious: No
  Sender: FDA-Public Use
  Company Number: US-GLAXOSMITHKLINE-A0423605A

PATIENT
  Age: 68 Year
  Sex: Female
  Weight: 75 kg

DRUGS (6)
  1. PAXIL [Suspect]
     Indication: PANIC DISORDER
     Dosage: 12.5MG PER DAY
     Route: 048
     Dates: start: 20021101
  2. TOPROL-XL [Concomitant]
     Dosage: 50MG PER DAY
     Route: 048
  3. NORVASC [Concomitant]
     Dosage: 10MG PER DAY
     Route: 048
  4. DIOVAN [Concomitant]
     Dosage: 150MG PER DAY
     Route: 048
  5. IMDUR [Concomitant]
     Dosage: 60MG TWICE PER DAY
     Route: 048
  6. FOLIC ACID [Concomitant]
     Dosage: 1MG PER DAY
     Route: 048

REACTIONS (3)
  - ANXIETY [None]
  - INSOMNIA [None]
  - NAUSEA [None]
